FAERS Safety Report 13737671 (Version 1)
Quarter: 2017Q3

REPORT INFORMATION
  Report Type: Report from Study
  Country: US (occurrence: US)
  Receive Date: 20170710
  Receipt Date: 20170710
  Transmission Date: 20171127
  Serious: No
  Sender: FDA-Public Use
  Company Number: US-SAOL THERAPEUTICS-2016SAO00326

PATIENT
  Sex: Male

DRUGS (11)
  1. COMPOUNDED BACLOFEN [Suspect]
     Active Substance: BACLOFEN
     Indication: CEREBROVASCULAR ACCIDENT
     Dosage: 112.96 ?G, \DAY
     Route: 037
     Dates: start: 20151016
  2. NORTRIPTYLINE [Suspect]
     Active Substance: NORTRIPTYLINE
  3. TRAMADOL. [Suspect]
     Active Substance: TRAMADOL
  4. OXYCODONE-ACETAMINOPHEN [Suspect]
     Active Substance: ACETAMINOPHEN\OXYCODONE HYDROCHLORIDE
     Dosage: UNK
  5. BACLOFEN. [Suspect]
     Active Substance: BACLOFEN
  6. HYDROCODONE-ACETAMINOPHEN [Suspect]
     Active Substance: ACETAMINOPHEN\HYDROCODONE
  7. COMPOUNDED BACLOFEN [Suspect]
     Active Substance: BACLOFEN
     Indication: MUSCLE SPASTICITY
     Dosage: 140.05 ?G, \DAY
     Route: 037
     Dates: end: 20151016
  8. DILAUDID [Suspect]
     Active Substance: HYDROMORPHONE HYDROCHLORIDE
     Dosage: 0.08403 MG, \DAY
     Route: 037
     Dates: end: 20151016
  9. DILAUDID [Suspect]
     Active Substance: HYDROMORPHONE HYDROCHLORIDE
     Dosage: 0.06777 MG, \DAY
     Route: 037
     Dates: start: 20151016
  10. DESIPRAMINE [Suspect]
     Active Substance: DESIPRAMINE
  11. GABAPENTIN. [Suspect]
     Active Substance: GABAPENTIN

REACTIONS (3)
  - Pain [Recovered/Resolved]
  - Drug tolerance increased [Recovered/Resolved]
  - Therapy non-responder [Recovered/Resolved]
